FAERS Safety Report 9365901 (Version 1)
Quarter: 2013Q2

REPORT INFORMATION
  Report Type: Spontaneous
  Country: US (occurrence: US)
  Receive Date: 20130625
  Receipt Date: 20130625
  Transmission Date: 20140414
  Serious: Yes (Hospitalization)
  Sender: FDA-Public Use
  Company Number: US-SANOFI-AVENTIS-2013SA063324

PATIENT
  Age: 75 Year
  Sex: Female

DRUGS (2)
  1. LANTUS SOLOSTAR [Suspect]
     Indication: DIABETES MELLITUS
     Dosage: THERAPY START DATE - YEARS?FREQUENCY - 37 UNITS AM AND 37 UNITS PM, SLIDING SCALE DOSE:37 UNIT(S)
     Route: 051
  2. SOLOSTAR [Suspect]
     Indication: DIABETES MELLITUS
     Dosage: THERAPY START DATE - YEARS

REACTIONS (3)
  - Dehydration [Recovered/Resolved]
  - Dyspnoea [Recovered/Resolved]
  - Local swelling [Recovered/Resolved]
